FAERS Safety Report 14416908 (Version 1)
Quarter: 2018Q1

REPORT INFORMATION
  Report Type: Spontaneous
  Country: US (occurrence: US)
  Receive Date: 20180119
  Receipt Date: 20180119
  Transmission Date: 20180509
  Serious: No
  Sender: FDA-Public Use
  Company Number: None

PATIENT
  Age: 61 Year
  Sex: Male

DRUGS (12)
  1. GABAPENTIN. [Concomitant]
     Active Substance: GABAPENTIN
  2. METOCLOPRAMIDE. [Concomitant]
     Active Substance: METOCLOPRAMIDE
  3. MORPHINE [Concomitant]
     Active Substance: MORPHINE
  4. VORICONAZOLE. [Concomitant]
     Active Substance: VORICONAZOLE
  5. ACYCLOVIR. [Concomitant]
     Active Substance: ACYCLOVIR
  6. ENOXAPARIN [Concomitant]
     Active Substance: ENOXAPARIN
  7. ACETAMINOPHEN. [Concomitant]
     Active Substance: ACETAMINOPHEN
  8. ALLOPURINOL. [Concomitant]
     Active Substance: ALLOPURINOL
  9. CHLORHEXADINE [Concomitant]
     Active Substance: CHLORHEXIDINE
  10. VORICONAZOLE. [Concomitant]
     Active Substance: VORICONAZOLE
  11. CYTARABINE. [Suspect]
     Active Substance: CYTARABINE
     Indication: NEOPLASM MALIGNANT
     Route: 042
     Dates: start: 20170912
  12. PYRIDOXINE [Concomitant]
     Active Substance: PYRIDOXINE

REACTIONS (2)
  - Neuropathy peripheral [None]
  - Erythema [None]

NARRATIVE: CASE EVENT DATE: 20170917
